FAERS Safety Report 9382989 (Version 1)
Quarter: 2013Q3

REPORT INFORMATION
  Report Type: Spontaneous
  Country: US (occurrence: US)
  Receive Date: 20130703
  Receipt Date: 20130703
  Transmission Date: 20140515
  Serious: Yes (Death, Hospitalization, Other)
  Sender: FDA-Public Use
  Company Number: US-AMGEN-USASP2013045406

PATIENT
  Age: 84 Year
  Sex: Female

DRUGS (4)
  1. PROLIA [Suspect]
     Indication: OSTEOPOROSIS
     Dosage: UNK UNK, Q6MO
     Dates: start: 201201
  2. CALCIUM [Concomitant]
  3. ATENOLOL [Concomitant]
  4. INSULIN [Concomitant]

REACTIONS (12)
  - Death [Fatal]
  - Kidney infection [Unknown]
  - Infection [Unknown]
  - Blood calcium abnormal [Unknown]
  - Pain [Unknown]
  - Pneumonia [Unknown]
  - Feeling abnormal [Unknown]
  - Mobility decreased [Unknown]
  - Arthropathy [Unknown]
  - Asthenia [Unknown]
  - Arthralgia [Unknown]
  - Back pain [Unknown]
